FAERS Safety Report 6381073-6 (Version None)
Quarter: 2009Q3

REPORT INFORMATION
  Report Type: 
  Country: None (occurrence: None)
  Receive Date: 20090925
  Receipt Date: 20090925
  Transmission Date: 20100115
  Serious: Yes (Other)
  Sender: FDA-Public Use
  Company Number: None

PATIENT
  Sex: Female

DRUGS (1)
  1. RISPERDAL [Suspect]
     Indication: COMPLEX PARTIAL SEIZURES
     Dosage: 1MG 1 AM  1/2 PM

REACTIONS (1)
  - ABNORMAL BEHAVIOUR [None]
